FAERS Safety Report 12378168 (Version 2)
Quarter: 2016Q2

REPORT INFORMATION
  Report Type: Report from Study
  Country: US (occurrence: US)
  Receive Date: 20160517
  Receipt Date: 20160628
  Transmission Date: 20160815
  Serious: Yes (Hospitalization)
  Sender: FDA-Public Use
  Company Number: US-BIOGEN-2016BI00235144

PATIENT
  Sex: Female

DRUGS (1)
  1. TECFIDERA [Suspect]
     Active Substance: DIMETHYL FUMARATE
     Indication: MULTIPLE SCLEROSIS
     Route: 048
     Dates: start: 201603

REACTIONS (5)
  - Seizure [Unknown]
  - Mental status changes [Unknown]
  - Blood lactic acid increased [Unknown]
  - Tachycardia [Unknown]
  - Leukocytosis [Unknown]
